FAERS Safety Report 23379739 (Version 7)
Quarter: 2025Q2

REPORT INFORMATION
  Report Type: Report from Study
  Country: KR (occurrence: KR)
  Receive Date: 20240108
  Receipt Date: 20250506
  Transmission Date: 20250716
  Serious: Yes (Hospitalization)
  Sender: ABBVIE
  Company Number: KR-ABBVIE-5574642

PATIENT
  Age: 42 Year
  Sex: Female
  Weight: 58 kg

DRUGS (9)
  1. SKYRIZI [Suspect]
     Active Substance: RISANKIZUMAB-RZAA
     Indication: Psoriasis
     Route: 058
     Dates: start: 20230719, end: 20230719
  2. SKYRIZI [Suspect]
     Active Substance: RISANKIZUMAB-RZAA
     Route: 058
     Dates: start: 20231011, end: 20231011
  3. SKYRIZI [Suspect]
     Active Substance: RISANKIZUMAB-RZAA
     Route: 058
     Dates: start: 20240103, end: 20240103
  4. SKYRIZI [Suspect]
     Active Substance: RISANKIZUMAB-RZAA
     Route: 058
     Dates: start: 20230621, end: 20230621
  5. SKYRIZI [Suspect]
     Active Substance: RISANKIZUMAB-RZAA
     Route: 058
     Dates: start: 20240401, end: 20240401
  6. SKYRIZI [Suspect]
     Active Substance: RISANKIZUMAB-RZAA
     Route: 058
     Dates: start: 20240624, end: 20240624
  7. FOLIC ACID [Concomitant]
     Active Substance: FOLIC ACID
     Indication: Prophylaxis
     Dosage: SINIL TAB 1MG (FOLIC ACID 1 MG)
     Route: 048
     Dates: start: 20230102, end: 20230720
  8. ENSTILUM [Concomitant]
     Indication: Psoriasis
     Dates: start: 20240920
  9. Yuhan methotrexate [Concomitant]
     Indication: Psoriasis
     Dosage: TAB 2.5MG (METHOTREXATE 2.5 MG)
     Route: 048
     Dates: start: 20230607, end: 20230718

REACTIONS (3)
  - Uterine polyp [Recovered/Resolved]
  - Uterine leiomyoma [Recovered/Resolved]
  - Glaucoma [Not Recovered/Not Resolved]

NARRATIVE: CASE EVENT DATE: 20231117
